FAERS Safety Report 9399185 (Version 1)
Quarter: 2013Q3

REPORT INFORMATION
  Report Type: Spontaneous
  Country: US (occurrence: None)
  Receive Date: 20130709
  Receipt Date: 20130709
  Transmission Date: 20140515
  Serious: Yes (Disabling, Other)
  Sender: FDA-Public Use
  Company Number: 2013P1010996

PATIENT
  Age: 60 Year
  Sex: Female

DRUGS (5)
  1. CIPROFLOXACIN [Suspect]
     Indication: LOWER RESPIRATORY TRACT INFECTION
     Dates: start: 20120705, end: 20120718
  2. LEVOTHYROXINE [Concomitant]
  3. RAMIPRIL [Concomitant]
  4. AMLODIPINE [Concomitant]
  5. OMEPRAZOLE [Concomitant]

REACTIONS (8)
  - Dizziness [None]
  - Vomiting [None]
  - Diarrhoea [None]
  - Tremor [None]
  - Urticaria [None]
  - Alopecia [None]
  - Mouth ulceration [None]
  - Drug effect decreased [None]
